FAERS Safety Report 8004688-8 (Version None)
Quarter: 2011Q4

REPORT INFORMATION
  Report Type: 
  Country: None (occurrence: None)
  Receive Date: 20111223
  Receipt Date: 20111215
  Transmission Date: 20120403
  Serious: Yes (Disabling)
  Sender: FDA-Public Use
  Company Number: DE-JNJFOC-20111206524

PATIENT
  Age: 79 Year
  Sex: Female
  Weight: 71 kg

DRUGS (7)
  1. DURAGESIC-100 [Suspect]
     Indication: RADICULAR PAIN
     Route: 062
     Dates: start: 20110615, end: 20110617
  2. METOPROLOL SUCCINATE [Concomitant]
     Indication: HYPERTENSION
     Route: 048
  3. CITALOPRAM HYDROBROMIDE [Suspect]
     Indication: PAIN
     Route: 048
     Dates: start: 20110615
  4. PANTOPRAZOLE SODIUM [Suspect]
     Indication: GASTROOESOPHAGEAL REFLUX DISEASE
     Route: 048
  5. NOVALGIN [Concomitant]
     Indication: PAIN
     Route: 048
  6. DURAGESIC-100 [Suspect]
     Route: 062
     Dates: start: 20110618, end: 20110703
  7. PANTOPRAZOLE SODIUM [Suspect]
     Route: 048

REACTIONS (18)
  - FALL [None]
  - HYPONATRAEMIA [None]
  - NAUSEA [None]
  - AKATHISIA [None]
  - CONFUSIONAL STATE [None]
  - HYPERVENTILATION [None]
  - INFLUENZA LIKE ILLNESS [None]
  - TACHYPNOEA [None]
  - DRY MOUTH [None]
  - RESTLESSNESS [None]
  - ANXIETY [None]
  - BODY TEMPERATURE INCREASED [None]
  - MEMORY IMPAIRMENT [None]
  - DIZZINESS [None]
  - MUSCLE TWITCHING [None]
  - DELIRIUM [None]
  - HYPERTENSIVE CRISIS [None]
  - DIARRHOEA [None]
